FAERS Safety Report 5535302-9 (Version None)
Quarter: 2007Q4

REPORT INFORMATION
  Report Type: 
  Country: None (occurrence: None)
  Receive Date: 20071204
  Receipt Date: 20071204
  Transmission Date: 20080405
  Serious: No
  Sender: FDA-Public Use
  Company Number: None

PATIENT
  Age: 56 Year
  Sex: Male
  Weight: 102.0593 kg

DRUGS (1)
  1. CHANTIX [Suspect]
     Indication: SMOKING CESSATION THERAPY
     Dosage: 0.5 MG FOR SIX DAYS ONCE A DAY PO; 0.5 DAY SEVEN TO DAY NINE TWICE A DAY PO
     Route: 048
     Dates: start: 20071115, end: 20071122

REACTIONS (9)
  - ABNORMAL DREAMS [None]
  - AGGRESSION [None]
  - ARTHRALGIA [None]
  - DEPRESSION [None]
  - DISCOMFORT [None]
  - GAIT DISTURBANCE [None]
  - INSOMNIA [None]
  - MUSCULOSKELETAL STIFFNESS [None]
  - PAIN [None]
